FAERS Safety Report 10244815 (Version 2)
Quarter: 2014Q2

REPORT INFORMATION
  Report Type: Spontaneous
  Country: AU (occurrence: AU)
  Receive Date: 20140618
  Receipt Date: 20140618
  Transmission Date: 20141212
  Serious: Yes (Other)
  Sender: FDA-Public Use
  Company Number: AU-GILEAD-2014-0101339

PATIENT
  Sex: Male

DRUGS (2)
  1. VIREAD [Suspect]
     Indication: PRODUCT USED FOR UNKNOWN INDICATION
     Dosage: UNK
     Route: 065
  2. IRON [Concomitant]
     Dosage: UNK

REACTIONS (3)
  - Gastrointestinal angiodysplasia [Unknown]
  - Anaemia [Unknown]
  - Fatigue [Unknown]
